FAERS Safety Report 14297591 (Version 3)
Quarter: 2018Q1

REPORT INFORMATION
  Report Type: Spontaneous
  Country: US (occurrence: US)
  Receive Date: 20171218
  Receipt Date: 20180306
  Transmission Date: 20180509
  Serious: Yes (Hospitalization, Other)
  Sender: FDA-Public Use
  Company Number: US-AKORN PHARMACEUTICALS-2017AKN01434

PATIENT
  Age: 15 Year
  Sex: Male
  Weight: 67.57 kg

DRUGS (2)
  1. MYORISAN [Suspect]
     Active Substance: ISOTRETINOIN
     Indication: ACNE
     Dosage: 20 MG, 1X/DAY
     Dates: start: 20171024, end: 2017
  2. DESLORATADINE. [Concomitant]
     Active Substance: DESLORATADINE
     Dosage: 5 MG, 1X/DAY

REACTIONS (8)
  - Memory impairment [Recovering/Resolving]
  - Off label use [Recovered/Resolved]
  - Mood altered [Recovering/Resolving]
  - Irritability [Recovering/Resolving]
  - Appendicectomy [Recovered/Resolved]
  - Crying [Recovering/Resolving]
  - Disturbance in attention [Recovering/Resolving]
  - School refusal [Recovering/Resolving]

NARRATIVE: CASE EVENT DATE: 2017
